FAERS Safety Report 15239343 (Version 1)
Quarter: 2018Q3

REPORT INFORMATION
  Report Type: Spontaneous
  Country: CA (occurrence: CA)
  Receive Date: 20180803
  Receipt Date: 20180803
  Transmission Date: 20181010
  Serious: Yes (Other)
  Sender: FDA-Public Use
  Company Number: CA-SHIRE-CA201827043

PATIENT

DRUGS (5)
  1. TRAMADOL. [Concomitant]
     Active Substance: TRAMADOL
     Indication: BACK PAIN
  2. ADDERALL XR [Suspect]
     Active Substance: AMPHETAMINE ASPARTATE\AMPHETAMINE SULFATE\DEXTROAMPHETAMINE SACCHARATE\DEXTROAMPHETAMINE SULFATE
     Indication: POST-TRAUMATIC STRESS DISORDER
  3. ADDERALL XR [Suspect]
     Active Substance: AMPHETAMINE ASPARTATE\AMPHETAMINE SULFATE\DEXTROAMPHETAMINE SACCHARATE\DEXTROAMPHETAMINE SULFATE
     Indication: ATTENTION DEFICIT/HYPERACTIVITY DISORDER
  4. HYDROXYZINE [Concomitant]
     Active Substance: HYDROXYZINE HYDROCHLORIDE
     Indication: HYPERSENSITIVITY
  5. ADDERALL XR [Suspect]
     Active Substance: AMPHETAMINE ASPARTATE\AMPHETAMINE SULFATE\DEXTROAMPHETAMINE SACCHARATE\DEXTROAMPHETAMINE SULFATE
     Indication: DEPRESSION
     Dosage: 15 MG, 1X/DAY:QD ( ABOUT 3 TO 4 YEARS AGO)
     Route: 048

REACTIONS (24)
  - Chest injury [Unknown]
  - Urticaria [Unknown]
  - Rash [Unknown]
  - Dry mouth [Unknown]
  - Joint stiffness [Unknown]
  - Ulcer [Unknown]
  - Arthropod sting [Unknown]
  - Off label use [Unknown]
  - Thermal burn [Unknown]
  - Vomiting [Unknown]
  - Skin lesion [Unknown]
  - Balance disorder [Unknown]
  - Mass [Unknown]
  - Malaise [Unknown]
  - Sepsis [Unknown]
  - Hyperhidrosis [Unknown]
  - Drug ineffective [Unknown]
  - Pain of skin [Unknown]
  - Neuralgia [Unknown]
  - Photosensitivity reaction [Unknown]
  - Fall [Unknown]
  - Pruritus [Unknown]
  - Dental caries [Unknown]
  - Heart rate increased [Unknown]
